FAERS Safety Report 8507758-0 (Version None)
Quarter: 2012Q3

REPORT INFORMATION
  Report Type: 
  Country: None (occurrence: None)
  Receive Date: 20120709
  Receipt Date: 20120709
  Transmission Date: 20120928
  Serious: No
  Sender: FDA-Public Use
  Company Number: None

PATIENT
  Sex: Male

DRUGS (2)
  1. INVEGA [Suspect]
  2. INTUNIV [Suspect]

REACTIONS (9)
  - DRUG DISPENSING ERROR [None]
  - DYSTONIA [None]
  - CHEST PAIN [None]
  - TACHYCARDIA [None]
  - TREMOR [None]
  - MEDICATION ERROR [None]
  - WRONG DRUG ADMINISTERED [None]
  - TIC [None]
  - MALAISE [None]
